FAERS Safety Report 23705920 (Version 2)
Quarter: 2024Q2

REPORT INFORMATION
  Report Type: Report from Study
  Country: US (occurrence: US)
  Receive Date: 20240404
  Receipt Date: 20240423
  Transmission Date: 20240716
  Serious: Yes (Hospitalization, Other)
  Sender: FDA-Public Use
  Company Number: US-BAYER-2024A029967

PATIENT
  Age: 70 Year
  Sex: Female
  Weight: 78.912 kg

DRUGS (26)
  1. ADEMPAS [Suspect]
     Active Substance: RIOCIGUAT
     Indication: Pulmonary arterial hypertension
     Dosage: UNK
     Dates: start: 20220518
  2. ADEMPAS [Suspect]
     Active Substance: RIOCIGUAT
     Indication: Pulmonary arterial hypertension
     Dosage: 2.0 MG, TID
     Route: 048
  3. ADEMPAS [Suspect]
     Active Substance: RIOCIGUAT
     Indication: Pulmonary arterial hypertension
     Dosage: 2 MG, TID
     Route: 048
  4. ADEMPAS [Suspect]
     Active Substance: RIOCIGUAT
     Indication: Pulmonary arterial hypertension
     Dosage: 1 MG, TID
     Route: 048
  5. VITAMIN B12 [Concomitant]
     Active Substance: CYANOCOBALAMIN
  6. VITAMINS [Concomitant]
     Active Substance: VITAMINS
  7. LYRICA [Concomitant]
     Active Substance: PREGABALIN
  8. FOLIC ACID [Concomitant]
     Active Substance: FOLIC ACID
  9. MELATONIN [Concomitant]
     Active Substance: MELATONIN
  10. ACETAMINOPHEN\HYDROCODONE [Concomitant]
     Active Substance: ACETAMINOPHEN\HYDROCODONE
  11. IPRATROPIUM BROMIDE [Concomitant]
     Active Substance: IPRATROPIUM BROMIDE\IPRATROPIUM BROMIDE ANHYDROUS
  12. LASIX [Concomitant]
     Active Substance: FUROSEMIDE
  13. BREO ELLIPTA [Concomitant]
     Active Substance: FLUTICASONE FUROATE\VILANTEROL TRIFENATATE
  14. BIOTIN [Concomitant]
     Active Substance: BIOTIN
  15. ALLOPURINOL [Concomitant]
     Active Substance: ALLOPURINOL
  16. ELIQUIS [Concomitant]
     Active Substance: APIXABAN
  17. ALBUTEROL SULFATE [Concomitant]
     Active Substance: ALBUTEROL SULFATE
  18. HYDROXYUREA [Concomitant]
     Active Substance: HYDROXYUREA
  19. TRAMADOL HCL [Concomitant]
     Active Substance: TRAMADOL HYDROCHLORIDE
  20. OXYGEN [Concomitant]
     Active Substance: OXYGEN
  21. ACETAZOLAMIDE [Concomitant]
     Active Substance: ACETAZOLAMIDE
  22. GABAPENTIN [Concomitant]
     Active Substance: GABAPENTIN
  23. VITAMIN D3 [Concomitant]
     Active Substance: CHOLECALCIFEROL
  24. CALCIUM [Concomitant]
     Active Substance: CALCIUM
  25. ASPERCREME [DIETHYLAMINE SALICYLATE;METHYL NICOTINATE] [Concomitant]
  26. DEXILANT [Concomitant]
     Active Substance: DEXLANSOPRAZOLE

REACTIONS (15)
  - Dyspnoea [None]
  - Multiple allergies [None]
  - Chest pain [None]
  - Gastrointestinal pain [None]
  - Neuropathy peripheral [None]
  - Hypersensitivity [None]
  - Rhinorrhoea [None]
  - Sneezing [None]
  - Multiple allergies [Not Recovered/Not Resolved]
  - Cough [Not Recovered/Not Resolved]
  - Sneezing [None]
  - Back pain [None]
  - Peripheral swelling [None]
  - Pain in extremity [None]
  - Alopecia [None]

NARRATIVE: CASE EVENT DATE: 20230101
